FAERS Safety Report 4763131-2 (Version None)
Quarter: 2005Q3

REPORT INFORMATION
  Report Type: 
  Country: None (occurrence: None)
  Receive Date: 20050826
  Receipt Date: 20050315
  Transmission Date: 20060218
  Serious: Yes (Other)
  Sender: FDA-Public Use
  Company Number: USA-2004-0014918

PATIENT
  Age: 40 Year
  Sex: Male
  Weight: 86.2 kg

DRUGS (3)
  1. OXYCONTIN [Suspect]
     Indication: PAIN
     Dosage: 40 MG, BID
  2. NORCO [Concomitant]
  3. METHADONE HCL [Concomitant]

REACTIONS (19)
  - ACTIVITIES OF DAILY LIVING IMPAIRED [None]
  - ANXIETY [None]
  - ARTHRALGIA [None]
  - ASTHENIA [None]
  - DELUSIONAL DISORDER, UNSPECIFIED TYPE [None]
  - DEPRESSION [None]
  - DRUG DEPENDENCE [None]
  - DRUG WITHDRAWAL SYNDROME [None]
  - FACET JOINT SYNDROME [None]
  - LUMBAR RADICULOPATHY [None]
  - MOOD ALTERED [None]
  - OBSESSIVE-COMPULSIVE DISORDER [None]
  - OSTEOARTHRITIS [None]
  - PAIN [None]
  - PAIN IN EXTREMITY [None]
  - PARANOIA [None]
  - RADICULITIS [None]
  - SLEEP DISORDER [None]
  - TENDERNESS [None]
